FAERS Safety Report 8598897-7 (Version None)
Quarter: 2012Q3

REPORT INFORMATION
  Report Type: 
  Country: None (occurrence: None)
  Receive Date: 20120816
  Receipt Date: 20120808
  Transmission Date: 20120928
  Serious: Yes (Hospitalization, Other)
  Sender: FDA-Public Use
  Company Number: SE-ASTRAZENECA-2012SE43900

PATIENT
  Age: 27112 Day
  Sex: Female

DRUGS (11)
  1. LEVOTHYROXINE SODIUM [Concomitant]
  2. OMEPRAZOLE [Concomitant]
  3. HYDROXOCOBALAMIN [Concomitant]
  4. IBUMETIN [Concomitant]
  5. ATACAND [Concomitant]
     Route: 048
     Dates: end: 20120501
  6. TENORMIN [Concomitant]
     Route: 048
  7. AMITRIPTYLINE HCL [Concomitant]
  8. FLUNITRAZEPAM [Concomitant]
  9. ATACAND HCT [Suspect]
     Indication: ESSENTIAL HYPERTENSION
     Dosage: DAILY
     Route: 048
     Dates: start: 20120501, end: 20120602
  10. KALCIPOS-D [Concomitant]
  11. SIMVASTATIN [Concomitant]

REACTIONS (5)
  - HYPERTENSION [None]
  - HYPOAESTHESIA [None]
  - HYPONATRAEMIA [None]
  - PARAESTHESIA [None]
  - DRUG INEFFECTIVE [None]
